FAERS Safety Report 6375774-3 (Version None)
Quarter: 2009Q3

REPORT INFORMATION
  Report Type: 
  Country: None (occurrence: None)
  Receive Date: 20090922
  Receipt Date: 20090922
  Transmission Date: 20100115
  Serious: Yes (Hospitalization)
  Sender: FDA-Public Use
  Company Number: None

PATIENT
  Age: 68 Year
  Sex: Male
  Weight: 117.9352 kg

DRUGS (1)
  1. DIPHENHYDRAMINE HCL [Suspect]
     Indication: SELF-MEDICATION
     Dosage: ONE 50 MG LIQUID FILLED CAPSULE ONCE PO
     Route: 048
     Dates: start: 20090808, end: 20090808

REACTIONS (3)
  - INFLUENZA LIKE ILLNESS [None]
  - MALAISE [None]
  - NAUSEA [None]
